FAERS Safety Report 25770186 (Version 1)
Quarter: 2025Q3

REPORT INFORMATION
  Report Type: Report from Study
  Country: US (occurrence: US)
  Receive Date: 20250907
  Receipt Date: 20250907
  Transmission Date: 20251021
  Serious: Yes (Other)
  Sender: ALEXION PHARMACEUTICALS
  Company Number: US-AstraZeneca-CH-00944114A

PATIENT
  Age: 57 Year
  Sex: Female

DRUGS (2)
  1. FULVESTRANT [Suspect]
     Active Substance: FULVESTRANT
     Route: 065
  2. FULVESTRANT [Suspect]
     Active Substance: FULVESTRANT

REACTIONS (2)
  - Condition aggravated [Unknown]
  - Metastases to liver [Unknown]

NARRATIVE: CASE EVENT DATE: 20250819
